FAERS Safety Report 21647998 (Version 1)
Quarter: 2022Q4

REPORT INFORMATION
  Report Type: Spontaneous
  Country: US (occurrence: US)
  Receive Date: 20221128
  Receipt Date: 20221128
  Transmission Date: 20230113
  Serious: No
  Sender: FDA-Public Use
  Company Number: US-BRISTOL-MYERS SQUIBB COMPANY-2022-143905

PATIENT
  Age: 84 Year
  Sex: Female
  Weight: 77.56 kg

DRUGS (1)
  1. REVLIMID [Suspect]
     Active Substance: LENALIDOMIDE
     Indication: Plasma cell myeloma
     Dosage: 1 CAP DAILY X21 DAYS ON/ 7 DAYS OFF
     Route: 048
     Dates: start: 20221031

REACTIONS (2)
  - Ageusia [Unknown]
  - Dry mouth [Unknown]
